FAERS Safety Report 16754170 (Version 1)
Quarter: 2019Q3

REPORT INFORMATION
  Report Type: Spontaneous
  Country: GB (occurrence: GB)
  Receive Date: 20190829
  Receipt Date: 20190829
  Transmission Date: 20191005
  Serious: Yes (Hospitalization)
  Sender: FDA-Public Use
  Company Number: GB-ACCORD-152942

PATIENT
  Age: 74 Year
  Sex: Male

DRUGS (7)
  1. PARAFFIN [Concomitant]
     Active Substance: PARAFFIN
     Dosage: APPLY
     Route: 061
  2. LIGHT LIQUID PARAFFIN [Concomitant]
     Dosage: APPLY
     Route: 061
  3. MENTHOL. [Concomitant]
     Active Substance: MENTHOL
     Dosage: APPLY
     Route: 061
  4. FELODIPINE. [Concomitant]
     Active Substance: FELODIPINE
     Dosage: IN THE MORNING
     Route: 048
  5. AQUEOUS CREAM [Concomitant]
     Dosage: APPLY
     Route: 061
  6. FEXOFENADINE/FEXOFENADINE HYDROCHLORIDE [Concomitant]
     Dosage: IN THE MORNING
     Route: 048
  7. TEMOZOLOMIDE. [Suspect]
     Active Substance: TEMOZOLOMIDE
     Indication: PRODUCT USED FOR UNKNOWN INDICATION
     Route: 048

REACTIONS (2)
  - Rash vesicular [Recovered/Resolved with Sequelae]
  - Pyrexia [Unknown]

NARRATIVE: CASE EVENT DATE: 20190610
